FAERS Safety Report 4370866-2 (Version None)
Quarter: 2004Q2

REPORT INFORMATION
  Report Type: 
  Country: None (occurrence: None)
  Receive Date: 20040601
  Receipt Date: 20040518
  Transmission Date: 20050107
  Serious: Yes (Hospitalization)
  Sender: FDA-Public Use
  Company Number: PL-2004-025513

PATIENT
  Age: 33 Year
  Sex: Male
  Weight: 70 kg

DRUGS (3)
  1. BETAFERON (INTEFERON BETA - 1B) INJECTION, 250 UG [Suspect]
     Indication: MULTIPLE SCLEROSIS
     Dosage: 8 MIU, EVERY 2D, SUBCUTANEOUS
     Route: 058
     Dates: start: 20000201
  2. DITROPAN [Concomitant]
  3. SERONIL [Concomitant]

REACTIONS (5)
  - DEMYELINATION [None]
  - DYSPNOEA [None]
  - GUILLAIN-BARRE SYNDROME [None]
  - NEUROLOGICAL EXAMINATION ABNORMAL [None]
  - QUADRIPLEGIA [None]
